FAERS Safety Report 8181728-7 (Version None)
Quarter: 2012Q1

REPORT INFORMATION
  Report Type: 
  Country: None (occurrence: None)
  Receive Date: 20120302
  Receipt Date: 20111017
  Transmission Date: 20120608
  Serious: No
  Sender: FDA-Public Use
  Company Number: US-AMGEN-USASP2011039323

PATIENT
  Age: 67 Year
  Sex: Female
  Weight: 105.22 kg

DRUGS (7)
  1. NPLATE [Suspect]
     Indication: IDIOPATHIC THROMBOCYTOPENIC PURPURA
     Dosage: 1.3 MUG/KG, UNK
     Route: 058
     Dates: start: 20100813, end: 20110503
  2. XANAX [Concomitant]
     Dosage: 0.5 MG, UNK
  3. MAGNESIUM OXIDE [Concomitant]
     Indication: HYPOMAGNESAEMIA
     Dosage: 400 UNK, BID
  4. HYDROCHLOROTHIAZIDE [Concomitant]
     Dosage: 25 MG, UNK
  5. COZAAR [Concomitant]
     Dosage: 25 MG, UNK
  6. PROZAC [Concomitant]
     Dosage: 20 MG, UNK
  7. DOXEPIN HCL [Concomitant]
     Indication: DEPRESSION
     Dosage: 6 MG, PRN

REACTIONS (2)
  - FATIGUE [None]
  - DIZZINESS [None]
